FAERS Safety Report 8398416-4 (Version None)
Quarter: 2012Q2

REPORT INFORMATION
  Report Type: 
  Country: None (occurrence: None)
  Receive Date: 20120531
  Receipt Date: 20120529
  Transmission Date: 20120825
  Serious: No
  Sender: FDA-Public Use
  Company Number: US-BAYER-2012-053159

PATIENT
  Age: 33 Year
  Sex: Female
  Weight: 57 kg

DRUGS (2)
  1. MULTI-VITAMIN [Concomitant]
     Route: 048
  2. BETASERON [Suspect]
     Dosage: .3 MG, QOD
     Route: 058

REACTIONS (4)
  - TOOTHACHE [None]
  - PRURITUS [None]
  - WHITE BLOOD CELL COUNT DECREASED [None]
  - BURNING SENSATION [None]
